FAERS Safety Report 18267236 (Version 1)
Quarter: 2020Q3

REPORT INFORMATION
  Report Type: Spontaneous
  Country: US (occurrence: US)
  Receive Date: 20200915
  Receipt Date: 20200915
  Transmission Date: 20201103
  Serious: No
  Sender: FDA-Public Use
  Company Number: None

PATIENT
  Age: 44 Year
  Sex: Male
  Weight: 94.95 kg

DRUGS (22)
  1. GUAIFENESIN. [Concomitant]
     Active Substance: GUAIFENESIN
     Dates: start: 20200903, end: 20200910
  2. CEFTRIAXONE. [Concomitant]
     Active Substance: CEFTRIAXONE
     Dates: start: 20200902, end: 20200903
  3. CISATRACURIUM. [Concomitant]
     Active Substance: CISATRACURIUM
     Dates: start: 20200902, end: 20200902
  4. IODIXAL [Concomitant]
     Dates: start: 20200902, end: 20200902
  5. PROPOFOL. [Concomitant]
     Active Substance: PROPOFOL
     Dates: start: 20200902, end: 20200902
  6. CALIUM GLUCONATE [Concomitant]
     Dates: start: 20200903, end: 20200903
  7. REMDESIVIR. [Suspect]
     Active Substance: REMDESIVIR
     Indication: COVID-19
     Dosage: ?          OTHER FREQUENCY:1ST DOSE, THEN 100;?
     Route: 042
     Dates: start: 20200903, end: 20200906
  8. LORAZEPAM. [Concomitant]
     Active Substance: LORAZEPAM
     Dates: start: 20200902, end: 20200902
  9. OMNIPAQUE [Concomitant]
     Active Substance: IOHEXOL
     Dates: start: 20200902, end: 20200902
  10. ZITHROMAX [Concomitant]
     Active Substance: AZITHROMYCIN DIHYDRATE
     Dates: start: 20200902, end: 20200907
  11. INSULIN [Concomitant]
     Active Substance: INSULIN NOS
     Dates: start: 20200902, end: 20200904
  12. MIDAZOLAM. [Concomitant]
     Active Substance: MIDAZOLAM
     Dates: start: 20200902, end: 20200903
  13. OXYCODONE [Concomitant]
     Active Substance: OXYCODONE
     Dates: start: 20200903, end: 20200910
  14. ETOMIDATE. [Concomitant]
     Active Substance: ETOMIDATE
     Dates: start: 20200902, end: 20200902
  15. ROCURONIUM IJECTION [Concomitant]
     Dates: start: 20200902, end: 20200902
  16. SOLU?MEDROL [Concomitant]
     Active Substance: METHYLPREDNISOLONE SODIUM SUCCINATE
     Dates: start: 20200902, end: 20200902
  17. TYLENOL [Concomitant]
     Active Substance: ACETAMINOPHEN
     Dates: start: 20200902, end: 20200902
  18. PANTOPRAZOLE [Concomitant]
     Active Substance: PANTOPRAZOLE
     Dates: start: 20200903, end: 20200904
  19. FENTANYL. [Concomitant]
     Active Substance: FENTANYL
     Dates: start: 20200902, end: 20200902
  20. DEXMEDETOMIDINE. [Concomitant]
     Active Substance: DEXMEDETOMIDINE
     Dates: start: 20200903, end: 20200904
  21. HEPARIN [Concomitant]
     Active Substance: HEPARIN SODIUM
     Dates: start: 20200902, end: 20200903
  22. LEVOPHED [Concomitant]
     Active Substance: NOREPINEPHRINE BITARTRATE
     Dates: start: 20200902, end: 20200904

REACTIONS (3)
  - Hepatitis [None]
  - Liver function test increased [None]
  - Blood alkaline phosphatase increased [None]

NARRATIVE: CASE EVENT DATE: 20200906
